FAERS Safety Report 24242857 (Version 3)
Quarter: 2024Q3

REPORT INFORMATION
  Report Type: Spontaneous
  Country: EG (occurrence: EG)
  Receive Date: 20240823
  Receipt Date: 20240911
  Transmission Date: 20241017
  Serious: Yes (Other)
  Sender: MERCK
  Company Number: EG-009507513-2408EGY006374

PATIENT
  Sex: Female

DRUGS (9)
  1. KEYTRUDA [Suspect]
     Active Substance: PEMBROLIZUMAB
     Indication: Squamous cell carcinoma of the cervix
     Dosage: 200 MG, Q3W, 8 CYCLES IN TOTAL
     Route: 042
     Dates: start: 20230325, end: 202312
  2. KEYTRUDA [Suspect]
     Active Substance: PEMBROLIZUMAB
     Dosage: 200 MG, Q3W
     Route: 042
     Dates: start: 20240805, end: 20240805
  3. KEYTRUDA [Suspect]
     Active Substance: PEMBROLIZUMAB
     Dosage: 200 MILLIGRAM, Q3W
     Route: 042
     Dates: start: 20240902, end: 20240902
  4. TAXOL [Concomitant]
     Active Substance: PACLITAXEL
     Indication: Squamous cell carcinoma of the cervix
     Dosage: 200/260 MG (DISCREPANT INFORMATION), Q3W ON D1, 8 CYCLES IN TOTAL
     Route: 042
     Dates: start: 20230325, end: 202312
  5. CARBOPLATIN [Concomitant]
     Active Substance: CARBOPLATIN
     Indication: Squamous cell carcinoma of the cervix
     Dosage: 450/500 MG (DISCREPANT INFORMATION), Q3W ON D1, 8 CYCLES IN TOTAL
     Route: 042
     Dates: start: 20230325, end: 202312
  6. ALOXI [Concomitant]
     Active Substance: PALONOSETRON HYDROCHLORIDE
     Dosage: D1
     Route: 042
  7. EMEND [Concomitant]
     Active Substance: APREPITANT
     Dosage: D1, D2, D3
  8. NEUPOGEN [Concomitant]
     Active Substance: FILGRASTIM
     Dosage: D3, D4, D5
  9. ELIQUIS [Concomitant]
     Active Substance: APIXABAN
     Indication: Anticoagulant therapy
     Dosage: 5 MILLIGRAM DAILY, EVERY DAY (QD)

REACTIONS (24)
  - Cachexia [Unknown]
  - Deep vein thrombosis [Unknown]
  - Steroid diabetes [Unknown]
  - Central venous catheterisation [Unknown]
  - Malignant neoplasm progression [Unknown]
  - Neutropenia [Unknown]
  - Immune-mediated enterocolitis [Unknown]
  - Immune-mediated gastritis [Unknown]
  - Colitis [Recovering/Resolving]
  - Hypophagia [Unknown]
  - Somnolence [Unknown]
  - Hepatomegaly [Unknown]
  - Lymphocytosis [Unknown]
  - Normochromic normocytic anaemia [Unknown]
  - Spinal osteoarthritis [Unknown]
  - Hyperglycaemia [Unknown]
  - Duodenitis [Unknown]
  - Fatigue [Not Recovered/Not Resolved]
  - Vomiting [Not Recovered/Not Resolved]
  - Decreased appetite [Not Recovered/Not Resolved]
  - Thyroid mass [Unknown]
  - Pulmonary mass [Unknown]
  - Granuloma [Unknown]
  - Pulmonary calcification [Unknown]

NARRATIVE: CASE EVENT DATE: 20231201
